FAERS Safety Report 5678066-0 (Version None)
Quarter: 2008Q1

REPORT INFORMATION
  Report Type: 
  Country: None (occurrence: None)
  Receive Date: 20080319
  Receipt Date: 20080310
  Transmission Date: 20080703
  Serious: Yes (Death)
  Sender: FDA-Public Use
  Company Number: 2008006229

PATIENT
  Age: 33 Year
  Sex: Male

DRUGS (1)
  1. CETIRIZINE HCL [Suspect]

REACTIONS (1)
  - DYSPNOEA [None]
